FAERS Safety Report 11094146 (Version 1)
Quarter: 2015Q2

REPORT INFORMATION
  Report Type: Report from Study
  Country: US (occurrence: US)
  Receive Date: 20150506
  Receipt Date: 20150506
  Transmission Date: 20150821
  Serious: Yes (Other)
  Sender: FDA-Public Use
  Company Number: US-GLAXOSMITHKLINE-US2015GSK060489

PATIENT

DRUGS (4)
  1. DINACICLIB [Suspect]
     Active Substance: DINACICLIB
     Dosage: 14 MG, CYC
  2. DINACICLIB [Suspect]
     Active Substance: DINACICLIB
     Indication: CHRONIC LYMPHOCYTIC LEUKAEMIA
     Dosage: 7 MG, CYC
  3. OFATUMUMAB [Suspect]
     Active Substance: OFATUMUMAB
     Indication: CHRONIC LYMPHOCYTIC LEUKAEMIA
     Dosage: 300 MG, WE
  4. OFATUMUMAB [Suspect]
     Active Substance: OFATUMUMAB
     Dosage: 2000 MG, WE

REACTIONS (1)
  - Tumour lysis syndrome [Unknown]
